FAERS Safety Report 9272970 (Version 2)
Quarter: 2013Q2

REPORT INFORMATION
  Report Type: Spontaneous
  Country: CA (occurrence: CA)
  Receive Date: 20130506
  Receipt Date: 20130619
  Transmission Date: 20140414
  Serious: Yes (Hospitalization, Other)
  Sender: FDA-Public Use
  Company Number: CA-ELI_LILLY_AND_COMPANY-CA201304007756

PATIENT
  Age: 77 Year
  Sex: Female
  Weight: 40.6 kg

DRUGS (13)
  1. FORTEO [Suspect]
     Indication: OSTEOPOROSIS
     Dosage: 20 UG, QD
     Route: 058
     Dates: start: 20120911, end: 201301
  2. FORTEO [Suspect]
     Dosage: 20 UG, QD
     Route: 058
     Dates: start: 201302
  3. DILTIAZ [Concomitant]
  4. ENDOCET [Concomitant]
  5. GALANTAMINE [Concomitant]
  6. ZOPICLONE [Concomitant]
  7. FERROUS SULFATE [Concomitant]
  8. SYNTHROID [Concomitant]
  9. MVI [Concomitant]
  10. CALCIUM [Concomitant]
  11. VITAMIN D [Concomitant]
  12. ALLOPURINOL [Concomitant]
  13. ASA [Concomitant]
     Dosage: 81MG,DAILY

REACTIONS (11)
  - Cholelithiasis [Not Recovered/Not Resolved]
  - Pancreatitis [Unknown]
  - Cardiac failure congestive [Unknown]
  - Varices oesophageal [Recovered/Resolved]
  - Portal hypertensive gastropathy [Unknown]
  - Splenomegaly [Not Recovered/Not Resolved]
  - Myeloproliferative disorder [Not Recovered/Not Resolved]
  - Haemoglobin decreased [Unknown]
  - Back pain [Not Recovered/Not Resolved]
  - Tooth injury [Not Recovered/Not Resolved]
  - Blood potassium increased [Unknown]
